FAERS Safety Report 12460454 (Version 2)
Quarter: 2016Q3

REPORT INFORMATION
  Report Type: Report from Study
  Country: TW (occurrence: TW)
  Receive Date: 20160613
  Receipt Date: 20160706
  Transmission Date: 20161109
  Serious: Yes (Hospitalization)
  Sender: FDA-Public Use
  Company Number: TW-BAYER-2016-108211

PATIENT
  Sex: Male

DRUGS (7)
  1. STIVARGA [Suspect]
     Active Substance: REGORAFENIB
     Indication: COLORECTAL CANCER METASTATIC
     Dosage: 3 TABLETS X 40 MG
     Dates: start: 20160505, end: 20160518
  2. STIVARGA [Suspect]
     Active Substance: REGORAFENIB
     Indication: COLORECTAL CANCER METASTATIC
     Dosage: 2 TABLETS X 40 MG (RE-ESCALATION)
     Dates: start: 20150602
  3. ULTRACET [Concomitant]
     Active Substance: ACETAMINOPHEN\TRAMADOL HYDROCHLORIDE
     Dosage: DAILY DOSE 150 MG
     Dates: start: 20151208
  4. CODEINE [Concomitant]
     Active Substance: CODEINE
     Dosage: DAILY DOSE 120 MG
     Dates: start: 20160331
  5. FUROSEMIDE. [Concomitant]
     Active Substance: FUROSEMIDE
     Dosage: DAILY DOSE 80 MG
     Dates: start: 20160526, end: 20160601
  6. STIVARGA [Suspect]
     Active Substance: REGORAFENIB
     Indication: COLORECTAL CANCER METASTATIC
     Dosage: 3 X 40 MG (RE-ESCALATION)
     Dates: start: 20160527, end: 20160527
  7. CAMPTO [Concomitant]
     Active Substance: IRINOTECAN
     Dosage: UNK
     Dates: start: 20160602

REACTIONS (1)
  - Pneumonitis [Recovering/Resolving]

NARRATIVE: CASE EVENT DATE: 20160527
